FAERS Safety Report 13398506 (Version 1)
Quarter: 2017Q2

REPORT INFORMATION
  Report Type: Other
  Country: US (occurrence: US)
  Receive Date: 20170403
  Receipt Date: 20170403
  Transmission Date: 20170830
  Serious: Yes (Other)
  Sender: FDA-Public Use
  Company Number: US-ALSI-201700098

PATIENT
  Age: 41 Year
  Sex: Female
  Weight: 44 kg

DRUGS (7)
  1. SUCCINYLCHOLINE CHLORIDE. [Concomitant]
     Active Substance: SUCCINYLCHOLINE CHLORIDE
  2. PROPOFOL. [Concomitant]
     Active Substance: PROPOFOL
  3. ROCURONIUM [Concomitant]
     Active Substance: ROCURONIUM BROMIDE
  4. FENTANYL. [Concomitant]
     Active Substance: FENTANYL
  5. OXYGEN. [Concomitant]
     Active Substance: OXYGEN
  6. CARBON DIOXIDE USP [Suspect]
     Active Substance: CARBON DIOXIDE
     Indication: ENDOSCOPY
     Route: 049
  7. SEVOFLURANE. [Concomitant]
     Active Substance: SEVOFLURANE

REACTIONS (3)
  - Pneumoperitoneum [Recovered/Resolved]
  - Hypercapnia [Recovered/Resolved]
  - Subcutaneous emphysema [Recovered/Resolved]
